FAERS Safety Report 7398788-3 (Version None)
Quarter: 2011Q2

REPORT INFORMATION
  Report Type: 
  Country: None (occurrence: None)
  Receive Date: 20110401
  Receipt Date: 20110401
  Transmission Date: 20111010
  Serious: Yes (Other)
  Sender: FDA-Public Use
  Company Number: None

PATIENT
  Sex: Male
  Weight: 70.7611 kg

DRUGS (2)
  1. ATRIPLA [Suspect]
     Indication: HIV INFECTION
     Dosage: ONE TAB DAILY PO
     Route: 048
     Dates: start: 20110318, end: 20110330
  2. ATRIPLA [Suspect]
     Indication: HEPATITIS B
     Dosage: ONE TAB DAILY PO
     Route: 048
     Dates: start: 20110318, end: 20110330

REACTIONS (1)
  - RASH GENERALISED [None]
